FAERS Safety Report 6508298-0 (Version None)
Quarter: 2009Q4

REPORT INFORMATION
  Report Type: 
  Country: None (occurrence: None)
  Receive Date: 20091221
  Receipt Date: 20081118
  Transmission Date: 20100525
  Serious: No
  Sender: FDA-Public Use
  Company Number: US-ASTRAZENECA-2008UW23904

PATIENT
  Age: 27480 Day
  Sex: Female
  Weight: 54.9 kg

DRUGS (2)
  1. CRESTOR [Suspect]
     Indication: HYPERCHOLESTEROLAEMIA
     Dosage: 5 MG
     Route: 048
     Dates: start: 20081013
  2. LEVSON [Concomitant]
     Indication: GASTROINTESTINAL DISORDER
     Dosage: 1/4 CAPSULE PRN

REACTIONS (5)
  - CONSTIPATION [None]
  - CONTUSION [None]
  - EXCORIATION [None]
  - FALL [None]
  - OEDEMA PERIPHERAL [None]
